FAERS Safety Report 11012628 (Version 1)
Quarter: 2015Q2

REPORT INFORMATION
  Report Type: Spontaneous
  Country: US (occurrence: None)
  Receive Date: 20150410
  Receipt Date: 20150410
  Transmission Date: 20150821
  Serious: No
  Sender: FDA-Public Use
  Company Number: None

PATIENT
  Age: 61 Year
  Sex: Male
  Weight: 86.18 kg

DRUGS (7)
  1. METOPROLOL [Concomitant]
     Active Substance: METOPROLOL
  2. ASPIRIN. [Concomitant]
     Active Substance: ASPIRIN
  3. CARBAMAZEPINE. [Concomitant]
     Active Substance: CARBAMAZEPINE
  4. PLACID [Concomitant]
  5. CARDURA [Suspect]
     Active Substance: DOXAZOSIN MESYLATE
     Indication: NEPHROLITHIASIS
     Dosage: TAKEN BY MOUTH 30 PILLS
     Dates: start: 20150407, end: 20150408
  6. NIFEDIPINE. [Concomitant]
     Active Substance: NIFEDIPINE
  7. SIMVASTATIN. [Concomitant]
     Active Substance: SIMVASTATIN

REACTIONS (4)
  - Carotid bruit [None]
  - Blood pressure abnormal [None]
  - Headache [None]
  - Heart rate abnormal [None]

NARRATIVE: CASE EVENT DATE: 20150408
